FAERS Safety Report 15361830 (Version 1)
Quarter: 2018Q3

REPORT INFORMATION
  Report Type: Spontaneous
  Country: US (occurrence: US)
  Receive Date: 20180831
  Receipt Date: 20180831
  Transmission Date: 20181010
  Serious: Yes (Hospitalization)
  Sender: FDA-Public Use
  Company Number: None

PATIENT
  Age: 54 Year
  Sex: Female
  Weight: 45.36 kg

DRUGS (1)
  1. METOCLOPRAMIDE. [Suspect]
     Active Substance: METOCLOPRAMIDE
     Indication: GASTROINTESTINAL DISORDER
     Route: 048
     Dates: start: 20180809, end: 20180812

REACTIONS (7)
  - Dystonia [None]
  - Musculoskeletal stiffness [None]
  - Dizziness [None]
  - Gait disturbance [None]
  - Tardive dyskinesia [None]
  - Urinary retention [None]
  - Vision blurred [None]

NARRATIVE: CASE EVENT DATE: 20180812
